APPROVED DRUG PRODUCT: PITAVASTATIN CALCIUM
Active Ingredient: PITAVASTATIN CALCIUM
Strength: EQ 1MG BASE
Dosage Form/Route: TABLET;ORAL
Application: A205955 | Product #001 | TE Code: AB
Applicant: SAWAI USA INC
Approved: Feb 3, 2017 | RLD: No | RS: No | Type: RX